FAERS Safety Report 19462527 (Version 5)
Quarter: 2022Q1

REPORT INFORMATION
  Report Type: Spontaneous
  Country: JP (occurrence: JP)
  Receive Date: 20210625
  Receipt Date: 20220127
  Transmission Date: 20220423
  Serious: Yes (Other)
  Sender: FDA-Public Use
  Company Number: JP-MTPC-MTPC2021-0015055

PATIENT
  Sex: Female

DRUGS (6)
  1. REMICADE [Suspect]
     Active Substance: INFLIXIMAB
     Indication: Behcet^s syndrome
     Dosage: UNK
     Route: 042
  2. REMICADE [Suspect]
     Active Substance: INFLIXIMAB
     Dosage: UNK
     Route: 042
     Dates: start: 20210615, end: 20210615
  3. REMICADE [Suspect]
     Active Substance: INFLIXIMAB
     Dosage: UNK
     Route: 042
  4. REMICADE [Suspect]
     Active Substance: INFLIXIMAB
     Dosage: UNK
     Route: 042
  5. NITROGLYCERIN [Concomitant]
     Active Substance: NITROGLYCERIN
     Route: 065
  6. Vasolan [Concomitant]
     Route: 065

REACTIONS (26)
  - Microvascular coronary artery disease [Unknown]
  - Prinzmetal angina [Unknown]
  - Angina pectoris [Unknown]
  - Gingival swelling [Unknown]
  - Genital lesion [Unknown]
  - Vitreous floaters [Unknown]
  - Lymph node pain [Unknown]
  - Eyelid disorder [Unknown]
  - Hyperreflexia [Unknown]
  - Pyrexia [Recovered/Resolved]
  - Arthralgia [Unknown]
  - Malaise [Unknown]
  - Dyspnoea [Unknown]
  - Anaemia [Unknown]
  - Dyspnoea exertional [Unknown]
  - Arthralgia [Unknown]
  - Chest discomfort [Unknown]
  - Stomatitis [Unknown]
  - Nasopharyngitis [Unknown]
  - Cough [Unknown]
  - Dysphonia [Unknown]
  - Headache [Unknown]
  - Hypoaesthesia [Unknown]
  - Oropharyngeal pain [Unknown]
  - Feeling abnormal [Unknown]
  - Therapeutic product effect decreased [Unknown]

NARRATIVE: CASE EVENT DATE: 20210616
